FAERS Safety Report 11021525 (Version 4)
Quarter: 2015Q2

REPORT INFORMATION
  Report Type: Spontaneous
  Country: PL (occurrence: PL)
  Receive Date: 20150413
  Receipt Date: 20150623
  Transmission Date: 20150821
  Serious: Yes (Life-Threatening)
  Sender: FDA-Public Use
  Company Number: PL-BEH-2015050255

PATIENT
  Age: 33 Year
  Sex: Male
  Weight: 67 kg

DRUGS (5)
  1. ACETYLCYSTEINUM [Concomitant]
     Indication: PRODUCTIVE COUGH
     Route: 048
     Dates: start: 20150310
  2. SANDOGLOBULIN [Suspect]
     Active Substance: HUMAN IMMUNOGLOBULIN G
     Indication: IMMUNODEFICIENCY
     Route: 042
     Dates: start: 20150326, end: 20150326
  3. LEVOXA [Concomitant]
     Active Substance: LEVOFLOXACIN
     Indication: PNEUMONIA
     Route: 042
     Dates: start: 20150320, end: 20150402
  4. CEFTRIAKSON [Concomitant]
     Active Substance: CEFTRIAXONE SODIUM
     Indication: PNEUMONIA
     Route: 042
     Dates: start: 20150320, end: 20150402
  5. TRILAC LACIDOFILUM [Concomitant]
     Indication: PROPHYLAXIS
     Dosage: DOSE : 3X2 CAPSULES
     Route: 048
     Dates: start: 20150320, end: 20150402

REACTIONS (9)
  - Urticaria [Recovered/Resolved]
  - Anaphylactic shock [Recovered/Resolved]
  - Hypotension [Recovered/Resolved]
  - Hyperhidrosis [Recovered/Resolved]
  - Pallor [Recovered/Resolved]
  - Malaise [Recovered/Resolved]
  - Blood pressure decreased [Recovered/Resolved]
  - Nausea [Recovered/Resolved]
  - Tachycardia [Recovered/Resolved]

NARRATIVE: CASE EVENT DATE: 20150326
